FAERS Safety Report 4809059-0 (Version None)
Quarter: 2005Q4

REPORT INFORMATION
  Report Type: 
  Country: None (occurrence: None)
  Receive Date: 20051024
  Receipt Date: 20051024
  Transmission Date: 20060501
  Serious: Yes (Other)
  Sender: FDA-Public Use
  Company Number: None

PATIENT
  Age: 52 Year
  Sex: Female
  Weight: 76.6579 kg

DRUGS (5)
  1. HUMIRA [Suspect]
     Indication: RHEUMATOID ARTHRITIS
     Dosage: 40MG S/C Q 2 WEEK
     Route: 058
     Dates: start: 20051014
  2. METHOTREXATE [Concomitant]
  3. FOLIC ACID [Concomitant]
  4. TOLECTIN [Concomitant]
  5. MULTI-VITAMIN [Concomitant]

REACTIONS (1)
  - PHOTOSENSITIVITY REACTION [None]
